FAERS Safety Report 5274658-1 (Version None)
Quarter: 2007Q1

REPORT INFORMATION
  Report Type: 
  Country: None (occurrence: None)
  Receive Date: 20070320
  Receipt Date: 20070314
  Transmission Date: 20070707
  Serious: Yes (Other)
  Sender: FDA-Public Use
  Company Number: 011669

PATIENT
  Sex: Female

DRUGS (4)
  1. MEDROXYPROGESTERONE [Suspect]
     Dosage: UNK, UNK, ORAL
     Route: 048
  2. PREMARIN [Suspect]
     Dosage: UNK, UNK, ORAL
     Route: 048
  3. PREMPRO [Suspect]
     Dosage: UNK, UNK, ORAL
     Route: 048
  4. PROVERA [Suspect]
     Dosage: UNK, UNK, ORAL
     Route: 048

REACTIONS (1)
  - BREAST CANCER FEMALE [None]
